FAERS Safety Report 23889646 (Version 1)
Quarter: 2024Q2

REPORT INFORMATION
  Report Type: Spontaneous
  Country: EG (occurrence: EG)
  Receive Date: 20240523
  Receipt Date: 20240523
  Transmission Date: 20240715
  Serious: Yes (Life-Threatening, Other)
  Sender: FDA-Public Use
  Company Number: None

PATIENT
  Age: 66 Year
  Sex: Female
  Weight: 102 kg

DRUGS (5)
  1. CARBOPLATIN [Suspect]
     Active Substance: CARBOPLATIN
     Indication: Endometrial cancer
     Dosage: 304 MG, WEEKLY (AUC 2)
     Route: 042
     Dates: start: 20240324, end: 20240401
  2. CARBOPLATIN [Suspect]
     Active Substance: CARBOPLATIN
     Dosage: 304 MG, WEEKLY (AUC 2)
     Route: 042
  3. PACLITAXEL [Suspect]
     Active Substance: PACLITAXEL
     Indication: Endometrial cancer
     Dosage: 150 MG, WEEKLY
     Route: 042
     Dates: start: 20240324, end: 20240401
  4. PACLITAXEL [Suspect]
     Active Substance: PACLITAXEL
     Dosage: 30 MG, WEEKLY
     Route: 042
     Dates: start: 20240324, end: 20240401
  5. PACLITAXEL [Suspect]
     Active Substance: PACLITAXEL
     Dosage: 150 MG, WEEKLY
     Route: 042

REACTIONS (3)
  - Deep vein thrombosis [Recovered/Resolved]
  - Oedema peripheral [Recovered/Resolved]
  - Off label use [Unknown]

NARRATIVE: CASE EVENT DATE: 20240324
